FAERS Safety Report 9242354 (Version 1)
Quarter: 2013Q2

REPORT INFORMATION
  Report Type: Spontaneous
  Country: BR (occurrence: BR)
  Receive Date: 20130419
  Receipt Date: 20130419
  Transmission Date: 20140414
  Serious: Yes (Other)
  Sender: FDA-Public Use
  Company Number: BR-ABBOTT-13P-020-1077426-00

PATIENT
  Age: 40 Year
  Sex: Male
  Weight: 70 kg

DRUGS (4)
  1. KALETRA TABLETS 200/50 [Suspect]
     Indication: HIV INFECTION
     Dosage: IN THE MORNING AND AT NIGHT 200/50
     Route: 048
     Dates: start: 201208, end: 201301
  2. KALETRA TABLETS 200/50 [Suspect]
     Dosage: IN THE MORNING AND AT NIGHT
     Route: 048
     Dates: start: 201301
  3. OTHER MEDICATION [Suspect]
     Indication: PRODUCT USED FOR UNKNOWN INDICATION
  4. LAMIVUDINE + ZIDOVUDINE [Concomitant]
     Indication: HIV INFECTION
     Dosage: 150MG/300 MG
     Route: 048

REACTIONS (4)
  - Convulsion [Not Recovered/Not Resolved]
  - Syncope [Recovering/Resolving]
  - Dizziness [Not Recovered/Not Resolved]
  - Asthenia [Not Recovered/Not Resolved]
